FAERS Safety Report 18553836 (Version 1)
Quarter: 2020Q4

REPORT INFORMATION
  Report Type: Spontaneous
  Country: CN (occurrence: CN)
  Receive Date: 20201127
  Receipt Date: 20201127
  Transmission Date: 20210114
  Serious: Yes (Other)
  Sender: FDA-Public Use
  Company Number: CN-PFIZER INC-2020465801

PATIENT
  Age: 77 Year
  Sex: Male
  Weight: 40 kg

DRUGS (1)
  1. ZYVOX [Suspect]
     Active Substance: LINEZOLID
     Indication: ANTI-INFECTIVE THERAPY
     Dosage: 300 MG, 2X/DAY
     Route: 041
     Dates: start: 20201110, end: 20201117

REACTIONS (2)
  - Platelet count decreased [Unknown]
  - Haemoptysis [Unknown]

NARRATIVE: CASE EVENT DATE: 20201114
